FAERS Safety Report 14586809 (Version 1)
Quarter: 2018Q1

REPORT INFORMATION
  Report Type: Spontaneous
  Country: US (occurrence: US)
  Receive Date: 20180228
  Receipt Date: 20180228
  Transmission Date: 20180509
  Serious: Yes (Life-Threatening)
  Sender: FDA-Public Use
  Company Number: None

PATIENT
  Age: 41 Year
  Sex: Male
  Weight: 101.25 kg

DRUGS (4)
  1. CLARITIN [Concomitant]
     Active Substance: LORATADINE
  2. FLONASE [Concomitant]
     Active Substance: FLUTICASONE PROPIONATE
  3. MONTELUKAST SOD GENERIC FOR SINGULAIR [Suspect]
     Active Substance: MONTELUKAST SODIUM
     Indication: UPPER-AIRWAY COUGH SYNDROME
     Dosage: ?          QUANTITY:1 TABLET(S);?
     Route: 048
  4. OMEPROLZOLE [Concomitant]

REACTIONS (12)
  - Pharyngeal oedema [None]
  - Depression [None]
  - Panic attack [None]
  - Feeling abnormal [None]
  - Myalgia [None]
  - Suicidal ideation [None]
  - Affective disorder [None]
  - Anxiety [None]
  - Respiratory rate increased [None]
  - Swollen tongue [None]
  - Feeling of despair [None]
  - Fear [None]

NARRATIVE: CASE EVENT DATE: 20180224
